FAERS Safety Report 18741673 (Version 1)
Quarter: 2021Q1

REPORT INFORMATION
  Report Type: Spontaneous
  Country: US (occurrence: US)
  Receive Date: 20210114
  Receipt Date: 20210114
  Transmission Date: 20210419
  Serious: Yes (Other)
  Sender: FDA-Public Use
  Company Number: US-SUN PHARMACEUTICAL INDUSTRIES LTD-2020R1-275638

PATIENT
  Age: 34 Year
  Sex: Male

DRUGS (3)
  1. OXYCODONE [Suspect]
     Active Substance: OXYCODONE
     Dosage: 5 MILLIGRAM, DAILY
     Route: 065
  2. OXYCODONE [Suspect]
     Active Substance: OXYCODONE
     Indication: SURGERY
     Dosage: AT AN AVG DOSE OF 50 MORPHINE MILLIGRAM QUIVALENT (MME) DAILY
     Route: 065
  3. OXYCODONE [Suspect]
     Active Substance: OXYCODONE
     Dosage: AT AN AVG DOSE OF 90 MORPHINE MILLIGRAM QUIVALENT (MME) DAILY
     Route: 065

REACTIONS (1)
  - Adrenal insufficiency [Unknown]
